FAERS Safety Report 19716021 (Version 1)
Quarter: 2021Q3

REPORT INFORMATION
  Report Type: Spontaneous
  Country: CA (occurrence: CA)
  Receive Date: 20210819
  Receipt Date: 20210819
  Transmission Date: 20211014
  Serious: Yes (Other)
  Sender: FDA-Public Use
  Company Number: CA-JNJFOC-20210826570

PATIENT
  Age: 58 Year
  Sex: Male
  Weight: 107 kg

DRUGS (1)
  1. REMICADE [Suspect]
     Active Substance: INFLIXIMAB
     Indication: CROHN^S DISEASE
     Route: 042

REACTIONS (11)
  - Erythema [Recovered/Resolved]
  - Dyspnoea [Recovered/Resolved]
  - Rash [Recovered/Resolved]
  - Thrombosis [Recovered/Resolved]
  - Oedema peripheral [Recovered/Resolved]
  - Pruritus [Recovered/Resolved]
  - Abdominal hernia [Recovered/Resolved]
  - Pain of skin [Recovered/Resolved]
  - Feeling hot [Recovered/Resolved]
  - Urticaria [Recovered/Resolved]
  - Blood pressure fluctuation [Recovered/Resolved]
